FAERS Safety Report 11045305 (Version 1)
Quarter: 2015Q2

REPORT INFORMATION
  Report Type: Spontaneous
  Country: US (occurrence: US)
  Receive Date: 20150417
  Receipt Date: 20150417
  Transmission Date: 20150821
  Serious: Yes (Death, Hospitalization)
  Sender: FDA-Public Use
  Company Number: US-ASTRAZENECA-2015SE34441

PATIENT
  Age: 88 Year
  Sex: Female
  Weight: 113.4 kg

DRUGS (5)
  1. SYMBICORT [Suspect]
     Active Substance: BUDESONIDE\FORMOTEROL FUMARATE DIHYDRATE
     Indication: ASTHMA
     Dosage: 80/4.5 MCG, 2 PUFFS, TWO TIMES A DAY
     Route: 055
  2. OXYCONTIN [Concomitant]
     Active Substance: OXYCODONE HYDROCHLORIDE
  3. MEDICATION FOR HIGH BLOOD PRESSURE [Concomitant]
     Active Substance: UNSPECIFIED INGREDIENT
  4. MEDICATION FOR DIABETES [Concomitant]
  5. SPIRIVA [Concomitant]
     Active Substance: TIOTROPIUM BROMIDE MONOHYDRATE

REACTIONS (10)
  - Cardiac failure congestive [Fatal]
  - Diabetes mellitus [Unknown]
  - Overweight [Unknown]
  - Dyspnoea [Unknown]
  - Anosognosia [Unknown]
  - Decreased activity [Unknown]
  - Restless legs syndrome [Unknown]
  - Wrong technique in drug usage process [Unknown]
  - Treatment noncompliance [Unknown]
  - Hypertension [Unknown]

NARRATIVE: CASE EVENT DATE: 201410
